FAERS Safety Report 19953074 (Version 1)
Quarter: 2021Q4

REPORT INFORMATION
  Report Type: Report from Study
  Country: EG (occurrence: EG)
  Receive Date: 20211014
  Receipt Date: 20211014
  Transmission Date: 20220303
  Serious: Yes (Other)
  Sender: FDA-Public Use
  Company Number: EG-002147023-NVSC2021EG228244

PATIENT
  Age: 30 Year
  Sex: Female

DRUGS (3)
  1. AIMOVIG [Suspect]
     Active Substance: ERENUMAB-AOOE
     Indication: Migraine
     Dosage: 70 MILLIGRAM, QMO
     Route: 058
     Dates: start: 20210904
  2. OSSOFORTIN [ERGOCALCIFEROL] [Concomitant]
     Indication: Muscle spasms
     Dosage: 10000 INTERNATIONAL UNIT (EVERY 2 DAYS)
     Route: 048
     Dates: start: 20210504
  3. AMIGRAWEST [Concomitant]
     Indication: Migraine
     Dosage: 1 DOSAGE FORM, AS NECESSARY (PRN)
     Route: 065

REACTIONS (2)
  - Movement disorder [Recovered/Resolved]
  - Migraine [Recovered/Resolved]

NARRATIVE: CASE EVENT DATE: 20210920
